FAERS Safety Report 8836541 (Version 1)
Quarter: 2012Q4

REPORT INFORMATION
  Report Type: Spontaneous
  Country: US (occurrence: None)
  Receive Date: 20121009
  Receipt Date: 20121009
  Transmission Date: 20130627
  Serious: No
  Sender: FDA-Public Use
  Company Number: 2012-00164

PATIENT
  Age: 35 Year
  Sex: Female
  Weight: 67.13 kg

DRUGS (2)
  1. ZICAM COLD REMEDY RAPIDMELTS [Suspect]
     Indication: COLD
     Dosage: 1 rapidmelt every 3-4 hours
     Dates: start: 20120806, end: 20120820
  2. BUSPIRONE [Concomitant]

REACTIONS (2)
  - Tongue disorder [None]
  - Ageusia [None]
